FAERS Safety Report 7034927-1 (Version None)
Quarter: 2010Q4

REPORT INFORMATION
  Report Type: 
  Country: None (occurrence: None)
  Receive Date: 20101008
  Receipt Date: 20100929
  Transmission Date: 20110411
  Serious: Yes (Other)
  Sender: FDA-Public Use
  Company Number: CH-ROCHE-730423

PATIENT
  Age: 59 Year
  Sex: Male

DRUGS (4)
  1. BEVACIZUMAB [Suspect]
     Route: 042
     Dates: start: 20091210, end: 20100804
  2. CAPECITABINE [Suspect]
     Route: 048
     Dates: start: 20091210, end: 20100421
  3. ELOXATIN [Concomitant]
     Dates: start: 20091210, end: 20100421
  4. CONCOR [Concomitant]
     Route: 048
     Dates: start: 20100106

REACTIONS (4)
  - DECREASED APPETITE [None]
  - MALIGNANT NEOPLASM PROGRESSION [None]
  - PARAESTHESIA [None]
  - WEIGHT DECREASED [None]
